FAERS Safety Report 7387299-7 (Version None)
Quarter: 2011Q1

REPORT INFORMATION
  Report Type: 
  Country: None (occurrence: None)
  Receive Date: 20110331
  Receipt Date: 20110318
  Transmission Date: 20110831
  Serious: Yes (Death, Life-Threatening)
  Sender: FDA-Public Use
  Company Number: US-ELI_LILLY_AND_COMPANY-US201103005957

PATIENT
  Age: 53 Year
  Sex: Female
  Weight: 140.59 kg

DRUGS (2)
  1. EFFIENT [Suspect]
     Indication: ACUTE CORONARY SYNDROME
     Dosage: 60 MG, UNK
     Dates: start: 20110311, end: 20110312
  2. ANGIOMAX [Concomitant]
     Dates: start: 20110311

REACTIONS (1)
  - THROMBOSIS IN DEVICE [None]
